FAERS Safety Report 23247814 (Version 1)
Quarter: 2023Q4

REPORT INFORMATION
  Report Type: Spontaneous
  Country: US (occurrence: US)
  Receive Date: 20231130
  Receipt Date: 20231130
  Transmission Date: 20240110
  Serious: No
  Sender: FDA-Public Use
  Company Number: US-JNJFOC-20231133662

PATIENT
  Age: 53 Year
  Sex: Male

DRUGS (1)
  1. MENS ROGAINE EXTRA STRENGTH [Suspect]
     Active Substance: MINOXIDIL
     Indication: Alopecia
     Dosage: 1/2 CAPFUL
     Route: 061
     Dates: start: 20231031

REACTIONS (1)
  - Application site ulcer [Recovering/Resolving]

NARRATIVE: CASE EVENT DATE: 20231105
